FAERS Safety Report 4508875-2 (Version None)
Quarter: 2004Q4

REPORT INFORMATION
  Report Type: 
  Country: None (occurrence: None)
  Receive Date: 20041123
  Receipt Date: 20041113
  Transmission Date: 20050328
  Serious: Yes (Death, Other)
  Sender: FDA-Public Use
  Company Number: US-BRISTOL-MYERS SQUIBB COMPANY-12766093

PATIENT
  Age: 93 Year
  Sex: Male

DRUGS (1)
  1. ABILIFY [Suspect]
     Indication: ABNORMAL BEHAVIOUR

REACTIONS (3)
  - CONVULSION [None]
  - DEATH [None]
  - PNEUMONIA [None]
